FAERS Safety Report 9087573 (Version 1)
Quarter: 2013Q1

REPORT INFORMATION
  Report Type: Spontaneous
  Country: BR (occurrence: BR)
  Receive Date: 20130131
  Receipt Date: 20130131
  Transmission Date: 20140127
  Serious: Yes (Hospitalization)
  Sender: FDA-Public Use
  Company Number: BR-PFIZER INC-2013036060

PATIENT
  Age: 77 Year
  Sex: Male

DRUGS (1)
  1. CELEBRA [Suspect]
     Indication: COLOSTOMY
     Dosage: 2 CAPSULES OF STRENGTH 200 MG (400 MG) DAILY
     Route: 048
     Dates: start: 20110125

REACTIONS (1)
  - Dementia Alzheimer^s type [Unknown]
